FAERS Safety Report 13651438 (Version 6)
Quarter: 2017Q4

REPORT INFORMATION
  Report Type: Report from Study
  Country: US (occurrence: US)
  Receive Date: 20170614
  Receipt Date: 20171004
  Transmission Date: 20180320
  Serious: Yes (Hospitalization, Other)
  Sender: FDA-Public Use
  Company Number: US-PFIZER INC-2017246087

PATIENT
  Age: 73 Year
  Sex: Female

DRUGS (1)
  1. IBRANCE [Suspect]
     Active Substance: PALBOCICLIB
     Indication: BREAST CANCER
     Dosage: 125 MG, CYCLIC (DAILY FOR 21 DAYS ON WITH 7 DAYS OFF ) (DAILY FOR 14 DAYS AND FOLLOWED BY 7-DAY REST
     Route: 048
     Dates: start: 20170511

REACTIONS (9)
  - Anaemia [Unknown]
  - Bone marrow failure [Unknown]
  - Leukopenia [Unknown]
  - Asthenia [Unknown]
  - Fatigue [Unknown]
  - Cellulitis [Unknown]
  - Dizziness [Unknown]
  - Tachycardia [Unknown]
  - Joint swelling [Unknown]
